FAERS Safety Report 7979060-7 (Version None)
Quarter: 2011Q4

REPORT INFORMATION
  Report Type: 
  Country: None (occurrence: None)
  Receive Date: 20111214
  Receipt Date: 20111210
  Transmission Date: 20120403
  Serious: No
  Sender: FDA-Public Use
  Company Number: US-PFIZER INC-2011301287

PATIENT
  Sex: Male
  Weight: 99.773 kg

DRUGS (12)
  1. METFORMIN [Concomitant]
     Dosage: 500 MG, 3X/DAY
  2. NIASPAN [Concomitant]
     Dosage: 1000 MG, DAILY
  3. TRICOR [Concomitant]
     Dosage: 145 MG, DAILY
  4. CARVEDILOL [Concomitant]
     Dosage: 25 MG, 2X/DAY
  5. ACETYLSALICYLIC ACID [Concomitant]
     Dosage: 81 MG, DAILY
  6. LISINOPRIL [Concomitant]
     Dosage: 10 MG, DAILY
  7. ACTOS [Concomitant]
     Dosage: 45 MG, DAILY
  8. DIGOXIN [Concomitant]
     Dosage: 0.25 MG, DAILY
  9. LIPITOR [Suspect]
     Indication: BLOOD CHOLESTEROL INCREASED
     Dosage: 80 MG, DAILY
  10. WARFARIN [Concomitant]
     Dosage: 5 MG, DAILY
  11. BUPROPION [Concomitant]
     Dosage: 500 MG, DAILY
  12. LUNESTA [Concomitant]
     Dosage: 3 MG, DAILY

REACTIONS (2)
  - BLOOD URINE PRESENT [None]
  - CHROMATURIA [None]
